FAERS Safety Report 21375879 (Version 1)
Quarter: 2022Q3

REPORT INFORMATION
  Report Type: Spontaneous
  Country: US (occurrence: US)
  Receive Date: 20220926
  Receipt Date: 20220926
  Transmission Date: 20221027
  Serious: Yes (Other)
  Sender: FDA-Public Use
  Company Number: US-PFIZER INC-202201159012

PATIENT
  Age: 93 Year
  Sex: Female

DRUGS (4)
  1. VANCOMYCIN HYDROCHLORIDE [Suspect]
     Active Substance: VANCOMYCIN HYDROCHLORIDE
     Indication: Vitritis
     Dosage: UNK (INTRAVITREAL INJECTION)
     Route: 047
  2. VANCOMYCIN HYDROCHLORIDE [Suspect]
     Active Substance: VANCOMYCIN HYDROCHLORIDE
     Dosage: UNK (ALTERNATING EVERY HOUR)
     Route: 061
  3. CEFTAZIDIME [Suspect]
     Active Substance: CEFTAZIDIME
     Indication: Vitritis
     Dosage: UNK (INTRAVITREAL INJECTION)
     Route: 047
  4. TOBRAMYCIN [Suspect]
     Active Substance: TOBRAMYCIN
     Indication: Vitritis
     Dosage: UNK (ALTERNATING EVERY HOUR)
     Route: 061

REACTIONS (1)
  - Necrotising scleritis [Recovered/Resolved]
